FAERS Safety Report 24815788 (Version 3)
Quarter: 2025Q3

REPORT INFORMATION
  Report Type: Report from Study
  Country: TW (occurrence: TW)
  Receive Date: 20250107
  Receipt Date: 20250802
  Transmission Date: 20251021
  Serious: Yes (Other)
  Sender: ALEXION PHARMACEUTICALS
  Company Number: TW-AstraZeneca-CH-00777806A

PATIENT
  Age: 57 Year
  Sex: Female
  Weight: 41 kg

DRUGS (2)
  1. IMJUDO [Suspect]
     Active Substance: TREMELIMUMAB\TREMELIMUMAB-ACTL
     Indication: Hepatic cancer
  2. DURVALUMAB [Suspect]
     Active Substance: DURVALUMAB
     Dosage: 1500 MILLIGRAM
     Dates: start: 20240911, end: 20241125

REACTIONS (3)
  - Malignant neoplasm progression [Unknown]
  - Drug ineffective [Recovered/Resolved]
  - Acquired gene mutation [Unknown]

NARRATIVE: CASE EVENT DATE: 20241201
